FAERS Safety Report 17710595 (Version 1)
Quarter: 2020Q2

REPORT INFORMATION
  Report Type: Spontaneous
  Country: PT (occurrence: PT)
  Receive Date: 20200427
  Receipt Date: 20200427
  Transmission Date: 20200714
  Serious: Yes (Life-Threatening)
  Sender: FDA-Public Use
  Company Number: NVSC2020PT111574

PATIENT
  Age: 63 Year
  Sex: Female

DRUGS (1)
  1. AMOXICILINA + CLAVULANATO DE POTASSIO [Suspect]
     Active Substance: AMOXICILLIN\CLAVULANATE POTASSIUM
     Indication: TRACHEOBRONCHITIS BACTERIAL
     Dosage: 2 DF (875/125), QD
     Route: 048

REACTIONS (4)
  - Bronchospasm [Unknown]
  - Angioedema [Unknown]
  - Anaphylactic reaction [Unknown]
  - Respiratory arrest [Unknown]

NARRATIVE: CASE EVENT DATE: 20200114
